FAERS Safety Report 6064719-1 (Version None)
Quarter: 2009Q1

REPORT INFORMATION
  Report Type: 
  Country: None (occurrence: None)
  Receive Date: 20090204
  Receipt Date: 20081003
  Transmission Date: 20090719
  Serious: No
  Sender: FDA-Public Use
  Company Number: A0740730A

PATIENT
  Age: 42 Year
  Sex: Female

DRUGS (5)
  1. ARIXTRA [Suspect]
     Dosage: 2.5MG CYCLIC
     Route: 058
     Dates: start: 20080528
  2. ASPIRIN [Concomitant]
  3. LEXAPRO [Concomitant]
  4. SYNTHROID [Concomitant]
  5. FOLGARD [Concomitant]

REACTIONS (2)
  - INJECTION SITE PAIN [None]
  - PRODUCT QUALITY ISSUE [None]
